FAERS Safety Report 8095896-9 (Version None)
Quarter: 2012Q1

REPORT INFORMATION
  Report Type: 
  Country: None (occurrence: None)
  Receive Date: 20120129
  Receipt Date: 20111213
  Transmission Date: 20120608
  Serious: No
  Sender: FDA-Public Use
  Company Number: US-ABBOTT-11P-163-0883418-00

PATIENT
  Sex: Female
  Weight: 74.91 kg

DRUGS (8)
  1. FOLIC ACID [Concomitant]
     Indication: PSORIATIC ARTHROPATHY
  2. PAXIL [Concomitant]
     Indication: DEPRESSION
  3. NORVASC [Concomitant]
     Indication: HYPERTENSION
  4. SYNTHROID [Concomitant]
     Indication: SJOGREN'S SYNDROME
  5. METHOTREXATE [Concomitant]
     Indication: PSORIATIC ARTHROPATHY
  6. HUMIRA [Suspect]
     Indication: PSORIATIC ARTHROPATHY
     Dates: start: 20101001
  7. LOTEMAX [Concomitant]
     Indication: CORNEAL EROSION
     Dosage: EYE DROPS
     Dates: start: 20110501
  8. IRON [Concomitant]
     Indication: IRON DEFICIENCY

REACTIONS (1)
  - CORNEAL EROSION [None]
